APPROVED DRUG PRODUCT: KONVOMEP
Active Ingredient: OMEPRAZOLE; SODIUM BICARBONATE
Strength: 2MG/ML;84MG/ML
Dosage Form/Route: FOR SUSPENSION;ORAL
Application: N213593 | Product #001
Applicant: AZURITY PHARMACEUTICALS INC
Approved: Aug 30, 2022 | RLD: Yes | RS: Yes | Type: RX

PATENTS:
Patent 11911473 | Expires: Jul 16, 2039
Patent 11911473 | Expires: Jul 16, 2039
Patent 11771686 | Expires: Mar 1, 2040
Patent 12440566 | Expires: Jul 16, 2039
Patent 12329752 | Expires: Jul 16, 2039
Patent 10751333 | Expires: Jul 16, 2039
Patent 11103492 | Expires: Jul 16, 2039
Patent 11633478 | Expires: Jul 16, 2039
Patent 12042539 | Expires: Jul 16, 2039